FAERS Safety Report 5829507-7 (Version None)
Quarter: 2008Q3

REPORT INFORMATION
  Report Type: 
  Country: None (occurrence: None)
  Receive Date: 20080729
  Receipt Date: 20080718
  Transmission Date: 20090109
  Serious: Yes (Death)
  Sender: FDA-Public Use
  Company Number: US023806

PATIENT
  Age: 45 Year
  Sex: Female
  Weight: 95.2554 kg

DRUGS (4)
  1. ACTIQ [Suspect]
     Indication: ABDOMINAL PAIN
     Dosage: 800 UG BID BUCCAL
     Route: 002
     Dates: start: 20061219, end: 20080606
  2. PROZAC [Suspect]
     Indication: DEPRESSION
     Dosage: 40 MG BID ORAL
     Route: 048
     Dates: start: 20080506, end: 20080606
  3. MORPHINE SULFATE [Concomitant]
  4. REQUIP [Concomitant]

REACTIONS (4)
  - ACCIDENTAL OVERDOSE [None]
  - DRUG TOXICITY [None]
  - PULMONARY CONGESTION [None]
  - PULMONARY OEDEMA [None]
